FAERS Safety Report 24868856 (Version 1)
Quarter: 2025Q1

REPORT INFORMATION
  Report Type: Spontaneous
  Country: US (occurrence: None)
  Receive Date: 20250117
  Receipt Date: 20250117
  Transmission Date: 20250409
  Serious: No
  Sender: FDA-CTU
  Company Number: None

PATIENT
  Age: 65 Year
  Sex: Male

DRUGS (2)
  1. REPATHA [Suspect]
     Active Substance: EVOLOCUMAB
     Route: 030
     Dates: start: 20241108, end: 20250117
  2. REPATHA [Concomitant]
     Active Substance: EVOLOCUMAB
     Dates: start: 20241108, end: 20250117

REACTIONS (3)
  - Back pain [None]
  - Dyspnoea [None]
  - Cough [None]

NARRATIVE: CASE EVENT DATE: 20250117
